FAERS Safety Report 5274420-X (Version None)
Quarter: 2007Q1

REPORT INFORMATION
  Report Type: 
  Country: None (occurrence: None)
  Receive Date: 20070323
  Receipt Date: 20070312
  Transmission Date: 20070707
  Serious: Yes (Life-Threatening, Hospitalization)
  Sender: FDA-Public Use
  Company Number: CZ-PFIZER INC-2007016179

PATIENT
  Sex: Female

DRUGS (1)
  1. SUTENT [Suspect]
     Indication: INTENTIONAL OVERDOSE
     Route: 048
     Dates: start: 20070227, end: 20070227

REACTIONS (1)
  - INTENTIONAL OVERDOSE [None]
